FAERS Safety Report 7422889-4 (Version None)
Quarter: 2011Q2

REPORT INFORMATION
  Report Type: 
  Country: None (occurrence: None)
  Receive Date: 20110414
  Receipt Date: 20110414
  Transmission Date: 20111010
  Serious: Yes (Disabling)
  Sender: FDA-Public Use
  Company Number: None

PATIENT
  Sex: Female
  Weight: 117.9352 kg

DRUGS (1)
  1. CYMBALTA [Suspect]
     Indication: DIABETIC NEUROPATHY
     Dosage: ONE TABLET DAILY PO
     Route: 048
     Dates: start: 20060426, end: 20100615

REACTIONS (9)
  - ABNORMAL BEHAVIOUR [None]
  - CRIME [None]
  - SOCIAL AVOIDANT BEHAVIOUR [None]
  - PYROMANIA [None]
  - LOSS OF EMPLOYMENT [None]
  - ECONOMIC PROBLEM [None]
  - VASCULAR RUPTURE [None]
  - HYPOACUSIS [None]
  - COMPULSIVE SHOPPING [None]
